FAERS Safety Report 7606694-1 (Version None)
Quarter: 2011Q3

REPORT INFORMATION
  Report Type: 
  Country: None (occurrence: None)
  Receive Date: 20110712
  Receipt Date: 20110712
  Transmission Date: 20111222
  Serious: No
  Sender: FDA-Public Use
  Company Number: None

PATIENT
  Sex: Male

DRUGS (1)
  1. SNORESTOP FAST [Suspect]
     Dosage: 3X /CONSECUTIVE

REACTIONS (2)
  - APHONIA [None]
  - SECRETION DISCHARGE [None]
